FAERS Safety Report 23733470 (Version 1)
Quarter: 2024Q2

REPORT INFORMATION
  Report Type: Spontaneous
  Country: RU (occurrence: RU)
  Receive Date: 20240411
  Receipt Date: 20240411
  Transmission Date: 20240715
  Serious: Yes (Other)
  Sender: FDA-Public Use
  Company Number: RU-SA-SAC20240407000052

PATIENT
  Sex: Male

DRUGS (3)
  1. CLOBAZAM [Suspect]
     Active Substance: CLOBAZAM
     Indication: Product used for unknown indication
     Dosage: 10 MG, Q8H
     Route: 065
  2. CLOBAZAM [Suspect]
     Active Substance: CLOBAZAM
     Dosage: 10 MG (1/2 TABLET) 3 TIMES A DAY
     Route: 065
  3. LEVETIRACETAM [Concomitant]
     Active Substance: LEVETIRACETAM
     Indication: Epilepsy
     Dosage: 1000 MG, BID
     Route: 065

REACTIONS (14)
  - Seizure [Recovering/Resolving]
  - Choking [Unknown]
  - Myoclonic epilepsy [Unknown]
  - Dysphagia [Unknown]
  - Vomiting [Recovered/Resolved]
  - Decreased appetite [Recovered/Resolved]
  - Oromandibular dystonia [Unknown]
  - Confusional state [Unknown]
  - Nausea [Recovering/Resolving]
  - Condition aggravated [Recovering/Resolving]
  - Head lag [Unknown]
  - Joint dislocation [Unknown]
  - Mastication disorder [Unknown]
  - Intentional product use issue [Unknown]
